FAERS Safety Report 20472824 (Version 2)
Quarter: 2022Q1

REPORT INFORMATION
  Report Type: Report from Study
  Country: DE (occurrence: DE)
  Receive Date: 20220215
  Receipt Date: 20220221
  Transmission Date: 20220423
  Serious: Yes (Other)
  Sender: FDA-Public Use
  Company Number: DE-ABBVIE-22K-062-4271882-00

PATIENT
  Sex: Female

DRUGS (6)
  1. SKYRIZI [Suspect]
     Active Substance: RISANKIZUMAB-RZAA
     Indication: Psoriasis
     Route: 058
     Dates: start: 20190805
  2. SKYRIZI [Suspect]
     Active Substance: RISANKIZUMAB-RZAA
     Route: 058
     Dates: start: 2022, end: 2022
  3. SKYRIZI [Suspect]
     Active Substance: RISANKIZUMAB-RZAA
     Dosage: DOSAGE DECREASED
     Route: 058
     Dates: start: 2022
  4. COVID-19 VACCINE [Concomitant]
     Indication: COVID-19 immunisation
     Dosage: DOSE 1
     Route: 030
  5. COVID-19 VACCINE [Concomitant]
     Dosage: DOSE 2
     Route: 030
  6. COVID-19 VACCINE [Concomitant]
     Dosage: DOSE 3
     Route: 030

REACTIONS (4)
  - Colorectal cancer [Unknown]
  - Gastrointestinal infection [Recovering/Resolving]
  - Diverticulitis [Recovering/Resolving]
  - Urinary tract inflammation [Recovering/Resolving]

NARRATIVE: CASE EVENT DATE: 20220101
